FAERS Safety Report 6781115-X (Version None)
Quarter: 2010Q2

REPORT INFORMATION
  Report Type: 
  Country: None (occurrence: None)
  Receive Date: 20100621
  Receipt Date: 20100617
  Transmission Date: 20101027
  Serious: Yes (Hospitalization)
  Sender: FDA-Public Use
  Company Number: IT-BRISTOL-MYERS SQUIBB COMPANY-15025208

PATIENT
  Age: 82 Year
  Sex: Male

DRUGS (1)
  1. SPRYCEL [Suspect]
     Indication: CHRONIC MYELOID LEUKAEMIA
     Dosage: INTERRUPTED ON 24FEB2010
     Dates: start: 20080422, end: 20100224

REACTIONS (6)
  - COMA [None]
  - CONVULSION [None]
  - ENCEPHALOPATHY [None]
  - HYPERPYREXIA [None]
  - HYPERTONIA [None]
  - HYPONATRAEMIA [None]
